FAERS Safety Report 5131820-6 (Version None)
Quarter: 2006Q4

REPORT INFORMATION
  Report Type: 
  Country: None (occurrence: None)
  Receive Date: 20061016
  Receipt Date: 20061003
  Transmission Date: 20070319
  Serious: Yes (Hospitalization)
  Sender: FDA-Public Use
  Company Number: 20031741418JP

PATIENT
  Age: 71 Year
  Sex: Male

DRUGS (4)
  1. CAMPTOSAR [Suspect]
     Indication: RECTAL CANCER
     Dosage: 120 MG, CYCLICAL, INTRAVENOUS
     Route: 042
     Dates: start: 20030127, end: 20030724
  2. FLUOROURACIL [Concomitant]
  3. CALCIUM LEVOFOLINATE (CALCIUM LEVOFOLINATE) [Concomitant]
  4. UFT [Concomitant]

REACTIONS (1)
  - INTERSTITIAL LUNG DISEASE [None]
